FAERS Safety Report 7916909-8 (Version None)
Quarter: 2011Q4

REPORT INFORMATION
  Report Type: 
  Country: None (occurrence: None)
  Receive Date: 20111116
  Receipt Date: 20111109
  Transmission Date: 20120403
  Serious: Yes (Hospitalization, Other)
  Sender: FDA-Public Use
  Company Number: AT-JNJFOC-20100201594

PATIENT
  Age: 79 Year
  Sex: Female
  Weight: 66 kg

DRUGS (2)
  1. PENICILLIN V [Suspect]
     Indication: TONSILLITIS
     Route: 048
  2. GOLIMUMAB [Suspect]
     Indication: RHEUMATOID ARTHRITIS
     Route: 058
     Dates: start: 20091221

REACTIONS (5)
  - SALMONELLOSIS [None]
  - TONSILLITIS [None]
  - DIARRHOEA [None]
  - MOUTH ULCERATION [None]
  - DEHYDRATION [None]
